FAERS Safety Report 23289933 (Version 1)
Quarter: 2023Q4

REPORT INFORMATION
  Report Type: Spontaneous
  Country: US (occurrence: US)
  Receive Date: 20231212
  Receipt Date: 20231212
  Transmission Date: 20240110
  Serious: Yes (Other)
  Sender: FDA-Public Use
  Company Number: US-AUROBINDO-AUR-APL-2023-064387

PATIENT
  Age: 72 Year
  Sex: Male

DRUGS (2)
  1. CLOZAPINE [Suspect]
     Active Substance: CLOZAPINE
     Indication: Product used for unknown indication
     Dosage: 50 MILLIGRAM, AT BED TIME
     Route: 048
  2. CLOZAPINE [Suspect]
     Active Substance: CLOZAPINE
     Dosage: 25 MILLIGRAM, EVERY MORNING
     Route: 048

REACTIONS (5)
  - Dementia Alzheimer^s type [Unknown]
  - Dementia [Unknown]
  - Anxiety [Unknown]
  - Hypertension [Unknown]
  - Hypercholesterolaemia [Unknown]
